FAERS Safety Report 4565634-2 (Version None)
Quarter: 2005Q1

REPORT INFORMATION
  Report Type: 
  Country: None (occurrence: None)
  Receive Date: 20050126
  Receipt Date: 20050118
  Transmission Date: 20050727
  Serious: Yes (Hospitalization)
  Sender: FDA-Public Use
  Company Number: 211856

PATIENT
  Age: 57 Year
  Sex: Male

DRUGS (1)
  1. RAPTIVA [Suspect]
     Indication: PSORIASIS
     Dosage: 1 MG/KG, 1 WEEK, SUBCUTANEOUS
     Route: 058
     Dates: start: 20041216

REACTIONS (2)
  - CELLULITIS [None]
  - GOUT [None]
